FAERS Safety Report 4747578-6 (Version None)
Quarter: 2005Q3

REPORT INFORMATION
  Report Type: 
  Country: None (occurrence: None)
  Receive Date: 20050818
  Receipt Date: 20041004
  Transmission Date: 20060218
  Serious: No
  Sender: FDA-Public Use
  Company Number: US-BRISTOL-MYERS SQUIBB COMPANY-12721338

PATIENT
  Age: 37 Year
  Sex: Female

DRUGS (2)
  1. TEQUIN [Suspect]
     Route: 048
  2. TEQUIN [Concomitant]
     Route: 042

REACTIONS (4)
  - HEADACHE [None]
  - NAUSEA [None]
  - ORTHOSTATIC HYPOTENSION [None]
  - TREMOR [None]
